FAERS Safety Report 5989504-8 (Version None)
Quarter: 2008Q4

REPORT INFORMATION
  Report Type: 
  Country: None (occurrence: None)
  Receive Date: 20081210
  Receipt Date: 20081126
  Transmission Date: 20090506
  Serious: Yes (Hospitalization)
  Sender: FDA-Public Use
  Company Number: -BAXTER-2008BH013150

PATIENT
  Age: 48 Year
  Sex: Male
  Weight: 107 kg

DRUGS (12)
  1. EXTRANEAL [Suspect]
     Indication: PERITONEAL DIALYSIS
     Route: 033
  2. GLICLAZIDE [Concomitant]
  3. ALFACALCIDOL [Concomitant]
  4. AMLOD [Concomitant]
  5. ASAFLOW [Concomitant]
  6. EMCONCOR /BEL/ [Concomitant]
  7. LIPITOR [Concomitant]
  8. MEDROL [Concomitant]
  9. NEORAL [Concomitant]
  10. PANTOZOL [Concomitant]
  11. PLAVIX [Concomitant]
  12. ZESTRIL [Concomitant]

REACTIONS (2)
  - GAIT DISTURBANCE [None]
  - PERITONITIS [None]
